FAERS Safety Report 5488891-7 (Version None)
Quarter: 2007Q4

REPORT INFORMATION
  Report Type: 
  Country: None (occurrence: None)
  Receive Date: 20071017
  Receipt Date: 20071011
  Transmission Date: 20080405
  Serious: Yes (Hospitalization)
  Sender: FDA-Public Use
  Company Number: FR-SHR-FR-2007-038484

PATIENT
  Age: 42 Year
  Sex: Female

DRUGS (2)
  1. ANDROCUR [Suspect]
     Indication: HYPERANDROGENISM
     Dosage: UNK, UNK
     Route: 048
     Dates: start: 20060201, end: 20070531
  2. JASMINE (21) [Suspect]
     Indication: ORAL CONTRACEPTION
     Dosage: 1 TAB(S), 21D/28D
     Route: 048
     Dates: end: 20070531

REACTIONS (3)
  - C-REACTIVE PROTEIN INCREASED [None]
  - NEUTROPHILIA [None]
  - PYREXIA [None]
